FAERS Safety Report 7397466-4 (Version None)
Quarter: 2011Q2

REPORT INFORMATION
  Report Type: 
  Country: None (occurrence: None)
  Receive Date: 20110406
  Receipt Date: 20110324
  Transmission Date: 20111010
  Serious: Yes (Other)
  Sender: FDA-Public Use
  Company Number: PHHY2011US24621

PATIENT
  Age: 73 Year
  Sex: Male

DRUGS (12)
  1. METOPROLOL TARTRATE [Suspect]
     Dosage: 50 MG, UNK
  2. DIGOXIN [Concomitant]
     Dosage: 1/8 MG
  3. LANTUS [Concomitant]
     Dosage: 70 U, BID
  4. METOPROLOL TARTRATE [Suspect]
     Dosage: 150 MG, BID
  5. POTASSIUM CHLORIDE [Concomitant]
     Dosage: 20 MEQ, PRN
  6. LIPITOR [Concomitant]
     Dosage: 1 PER DAY
  7. COUMADIN [Concomitant]
     Dosage: 3 MG, 3 PER WEEK
  8. PLAVIX [Concomitant]
     Dosage: 75 MG
  9. ALLOPURINOL [Concomitant]
  10. LOPRESSOR [Suspect]
     Dosage: 50 MG, 6 PER DAY
  11. FUROSEMIDE [Suspect]
     Dosage: UNK
  12. COUMADIN [Concomitant]
     Dosage: 5 MG, 4 PER WEEK

REACTIONS (3)
  - BLOOD GLUCOSE INCREASED [None]
  - WEIGHT DECREASED [None]
  - DECREASED APPETITE [None]
